FAERS Safety Report 17035787 (Version 1)
Quarter: 2019Q4

REPORT INFORMATION
  Report Type: Spontaneous
  Country: US (occurrence: US)
  Receive Date: 20191114
  Receipt Date: 20191114
  Transmission Date: 20200122
  Serious: Yes (Hospitalization, Other)
  Sender: FDA-Public Use
  Company Number: None

PATIENT
  Age: 69 Year
  Sex: Female

DRUGS (1)
  1. CAPECITABINE. [Suspect]
     Active Substance: CAPECITABINE
     Indication: BREAST CANCER FEMALE
     Route: 048

REACTIONS (11)
  - Ankle fracture [None]
  - Vision blurred [None]
  - Diplopia [None]
  - Fall [None]
  - Retinal disorder [None]
  - Muscle strain [None]
  - Dizziness [None]
  - Head injury [None]
  - Syncope [None]
  - Contusion [None]
  - Blood pressure decreased [None]
